FAERS Safety Report 5528857-1 (Version None)
Quarter: 2007Q4

REPORT INFORMATION
  Report Type: 
  Country: None (occurrence: None)
  Receive Date: 20071113
  Receipt Date: 20070923
  Transmission Date: 20080405
  Serious: No
  Sender: FDA-Public Use
  Company Number: 200716702US

PATIENT
  Age: 64 Year
  Sex: Male

DRUGS (5)
  1. APIDRA [Suspect]
     Indication: TYPE 2 DIABETES MELLITUS
     Dosage: 10 U QPM INJ
     Route: 042
     Dates: start: 20070901
  2. LANTUS [Concomitant]
  3. METFORMIN HCL [Concomitant]
  4. AMARYL [Concomitant]
  5. ZOCOR [Concomitant]

REACTIONS (1)
  - BLOOD PRESSURE INCREASED [None]
